FAERS Safety Report 16201166 (Version 2)
Quarter: 2019Q2

REPORT INFORMATION
  Report Type: Report from Study
  Country: None (occurrence: BE)
  Receive Date: 20190416
  Receipt Date: 20190417
  Transmission Date: 20190711
  Serious: Yes (Death)
  Sender: FDA-Public Use
  Company Number: BE-ABBVIE-19S-013-2745757-00

PATIENT
  Sex: Female

DRUGS (5)
  1. PROLOPA [Concomitant]
     Active Substance: BENSERAZIDE\LEVODOPA
     Indication: PARKINSON^S DISEASE
     Dosage: FORM STRENGTH: 200MG/50MG; UNIT DOSE: 1 TABLET 3 TIMES A DAY AND 0.5 TABLET 2 TIMES A DAY
     Route: 048
  2. PROLOPA [Concomitant]
     Active Substance: BENSERAZIDE\LEVODOPA
     Dosage: FORM STRENGTH: 200MG/50MG; UNIT DOSE: 0.5 UNIT?RESCUE MEDICATION
  3. DUODOPA [Suspect]
     Active Substance: CARBIDOPA\LEVODOPA
     Indication: PARKINSON^S DISEASE
     Dosage: MD= 1ML, CD= 2.9ML/HR DURING 16HRS , ED= 0.5ML
     Route: 050
     Dates: start: 20120522, end: 20120523
  4. DUODOPA [Suspect]
     Active Substance: CARBIDOPA\LEVODOPA
     Dosage: DOSES CONTINUOUSLY MONITORED AND ADAPTED
     Route: 050
     Dates: start: 20120523, end: 20180104
  5. DUODOPA [Suspect]
     Active Substance: CARBIDOPA\LEVODOPA
     Dosage: MD= 1.1ML, CD= 2.2ML/HR DURING 16HRS , ED= 0.6ML
     Route: 050
     Dates: start: 20180104

REACTIONS (1)
  - Sedative therapy [Fatal]
